FAERS Safety Report 20082491 (Version 1)
Quarter: 2021Q4

REPORT INFORMATION
  Report Type: Spontaneous
  Country: None (occurrence: US)
  Receive Date: 20211117
  Receipt Date: 20211117
  Transmission Date: 20220303
  Serious: Yes (Hospitalization)
  Sender: FDA-Public Use
  Company Number: US-Jacobus Pharmaceutical Company, Inc.-2121976

PATIENT
  Age: 77 Year
  Sex: Male

DRUGS (7)
  1. RUZURGI [Suspect]
     Active Substance: AMIFAMPRIDINE
     Indication: Myasthenic syndrome
     Route: 048
     Dates: start: 20210810
  2. LISINOPRIL [Concomitant]
     Active Substance: LISINOPRIL
  3. SIMVASTATIN [Concomitant]
     Active Substance: SIMVASTATIN
  4. AMLODIPINE [Concomitant]
     Active Substance: AMLODIPINE BESYLATE
  5. VITAMIN D [Concomitant]
     Active Substance: VITAMIN D NOS
  6. CYANOCOBALAMIN [Concomitant]
     Active Substance: CYANOCOBALAMIN
  7. POTASSIUM SULFATE [Concomitant]
     Active Substance: POTASSIUM SULFATE

REACTIONS (5)
  - Muscular weakness [Unknown]
  - Fall [Unknown]
  - Pain in extremity [Recovering/Resolving]
  - Ankle fracture [Recovering/Resolving]
  - Foot operation [Recovering/Resolving]
